FAERS Safety Report 8244483-8 (Version None)
Quarter: 2012Q1

REPORT INFORMATION
  Report Type: 
  Country: None (occurrence: None)
  Receive Date: 20120329
  Receipt Date: 20120328
  Transmission Date: 20120608
  Serious: Yes (Hospitalization)
  Sender: FDA-Public Use
  Company Number: SI-PFIZER INC-2012079028

PATIENT
  Age: 84 Year
  Sex: Female

DRUGS (23)
  1. INDAPAMIDE/PERINDOPRIL ARGININE [Suspect]
     Indication: ATRIAL FIBRILLATION
  2. BISOPROLOL FUMARATE [Suspect]
     Indication: MYOCARDIAL ISCHAEMIA
  3. BISOPROLOL FUMARATE [Suspect]
     Indication: ATRIAL FIBRILLATION
  4. ATORVASTATIN [Concomitant]
  5. CARDURA [Suspect]
     Indication: HYPERTENSION
     Dosage: 8 MG, UNK
     Route: 048
  6. LERCANIDIPINE [Suspect]
     Indication: MYOCARDIAL ISCHAEMIA
  7. ALDACTONE [Suspect]
     Indication: MYOCARDIAL ISCHAEMIA
  8. ALDACTONE [Suspect]
     Indication: ATRIAL FIBRILLATION
  9. INDAPAMIDE/PERINDOPRIL ARGININE [Suspect]
     Indication: HYPERTENSION
     Dosage: [PERINDOPRIL 8 MG/ INDAPAMIDE 2.5 MG], UNK
     Route: 048
  10. TORASEMIDE [Suspect]
     Indication: ATRIAL FIBRILLATION
  11. TORASEMIDE [Suspect]
     Indication: MYOCARDIAL ISCHAEMIA
  12. LERCANIDIPINE [Suspect]
     Indication: ATRIAL FIBRILLATION
  13. PLAVIX [Concomitant]
  14. CARDURA [Suspect]
     Indication: ATRIAL FIBRILLATION
  15. ALDACTONE [Suspect]
     Indication: HYPERTENSION
     Dosage: 25 MG, UNK
     Route: 048
  16. LERCANIDIPINE [Suspect]
     Indication: HYPERTENSION
     Dosage: 20 MG, UNK
     Route: 048
  17. INDAPAMIDE/PERINDOPRIL ARGININE [Suspect]
     Indication: MYOCARDIAL ISCHAEMIA
  18. BISOPROLOL FUMARATE [Suspect]
     Indication: HYPERTENSION
     Dosage: 10 MG, UNK
     Route: 048
  19. TORASEMIDE [Suspect]
     Indication: HYPERTENSION
     Dosage: 10 MG, UNK
     Route: 048
  20. CARDURA [Suspect]
     Indication: MYOCARDIAL ISCHAEMIA
  21. ASPIRIN [Concomitant]
  22. METFORMIN [Concomitant]
  23. GLUCOTROL [Concomitant]

REACTIONS (2)
  - HYPOTENSION [None]
  - LOSS OF CONSCIOUSNESS [None]
